FAERS Safety Report 6183749-2 (Version None)
Quarter: 2009Q2

REPORT INFORMATION
  Report Type: 
  Country: None (occurrence: None)
  Receive Date: 20090506
  Receipt Date: 20090506
  Transmission Date: 20091009
  Serious: Yes (Disabling, Other)
  Sender: FDA-Public Use
  Company Number: None

PATIENT
  Sex: Male
  Weight: 81.1939 kg

DRUGS (1)
  1. CARDURA [Suspect]
     Dosage: 4MG QD PO
     Route: 048
     Dates: start: 20090302, end: 20090429

REACTIONS (3)
  - ARTHRALGIA [None]
  - DRUG INTOLERANCE [None]
  - MYALGIA [None]
